FAERS Safety Report 7728318-5 (Version None)
Quarter: 2011Q3

REPORT INFORMATION
  Report Type: 
  Country: None (occurrence: None)
  Receive Date: 20110905
  Receipt Date: 20110830
  Transmission Date: 20111222
  Serious: Yes (Hospitalization, Other)
  Sender: FDA-Public Use
  Company Number: PHHY2011US27286

PATIENT
  Sex: Male
  Weight: 198 kg

DRUGS (13)
  1. LIPITOR [Concomitant]
     Dosage: UNK
  2. LUNESTA [Concomitant]
  3. VITAMIN B6 [Concomitant]
  4. ROCEPHIN [Concomitant]
     Dosage: UNK
  5. OMEPRAZOLE [Concomitant]
  6. FOLIC ACID [Concomitant]
  7. FLUCONAZOLE [Concomitant]
  8. VIDAZA [Concomitant]
  9. KLOR-CON [Concomitant]
  10. VITAMIN D [Concomitant]
  11. ARANESP [Concomitant]
     Dosage: 500 UG, BIW
  12. EXJADE [Suspect]
     Indication: MYELODYSPLASTIC SYNDROME
     Dosage: 500 MG, DAILY
     Route: 048
     Dates: start: 20110316
  13. AMLODIPINE [Concomitant]

REACTIONS (7)
  - ESCHERICHIA INFECTION [None]
  - RASH GENERALISED [None]
  - HAEMATURIA [None]
  - RENAL FAILURE ACUTE [None]
  - RASH MACULAR [None]
  - PRURITUS [None]
  - DISEASE PROGRESSION [None]
